FAERS Safety Report 9845303 (Version 1)
Quarter: 2014Q1

REPORT INFORMATION
  Report Type: Spontaneous
  Country: US (occurrence: None)
  Receive Date: 20140123
  Receipt Date: 20140123
  Transmission Date: 20141002
  Serious: No
  Sender: FDA-Public Use
  Company Number: None

PATIENT
  Age: 63 Year
  Sex: Female
  Weight: 56.7 kg

DRUGS (1)
  1. GABAPENTIN [Suspect]
     Route: 048
     Dates: start: 20131101, end: 20140111

REACTIONS (3)
  - Depression [None]
  - Product substitution issue [None]
  - Product measured potency issue [None]
